FAERS Safety Report 9458903 (Version 1)
Quarter: 2013Q3

REPORT INFORMATION
  Report Type: Report from Study
  Country: JP (occurrence: JP)
  Receive Date: 20130814
  Receipt Date: 20130814
  Transmission Date: 20140515
  Serious: Yes (Life-Threatening)
  Sender: FDA-Public Use
  Company Number: JP-GLAXOSMITHKLINE-B0914488A

PATIENT
  Age: 82 Year
  Sex: Female

DRUGS (9)
  1. ARIXTRA [Suspect]
     Indication: PULMONARY EMBOLISM
     Dosage: 5MG PER DAY
     Route: 058
     Dates: start: 20130101, end: 20130104
  2. WARFARIN [Concomitant]
     Indication: PULMONARY EMBOLISM
     Route: 048
     Dates: start: 20130101
  3. LOXOPROFEN [Concomitant]
     Route: 048
     Dates: end: 20130214
  4. DICLOFENAC SODIUM [Concomitant]
     Route: 048
     Dates: end: 20130101
  5. OLMETEC [Concomitant]
     Route: 048
  6. ARTIST [Concomitant]
     Route: 048
  7. EVISTA [Concomitant]
     Route: 048
  8. FEROTYM [Concomitant]
     Route: 048
     Dates: start: 20130101, end: 20130110
  9. FUROSEMIDE [Concomitant]
     Route: 048
     Dates: start: 20130101, end: 20130104

REACTIONS (2)
  - Pelvic haematoma obstetric [Recovered/Resolved]
  - Blood lactate dehydrogenase increased [Unknown]
